FAERS Safety Report 8514540-7 (Version None)
Quarter: 2012Q3

REPORT INFORMATION
  Report Type: 
  Country: None (occurrence: None)
  Receive Date: 20120717
  Receipt Date: 20120709
  Transmission Date: 20120928
  Serious: Yes (Hospitalization)
  Sender: FDA-Public Use
  Company Number: US-UCBSA-061453

PATIENT
  Sex: Female

DRUGS (9)
  1. KEPPRA [Suspect]
     Indication: EPILEPSY
     Dosage: DAILY DOSE-1000 MG
     Dates: start: 20120101
  2. PHENOBARBITAL TAB [Concomitant]
     Indication: EPILEPSY
     Dosage: DAILY DOSE: 150 MG
     Dates: end: 20120101
  3. IRON [Concomitant]
     Indication: PREGNANCY
     Route: 048
     Dates: start: 20110930
  4. HALDOL [Concomitant]
     Indication: SCHIZOPHRENIA
     Dosage: DAILY DOSE-10 MG
  5. FOLIC ACID [Concomitant]
     Indication: PREGNANCY
     Route: 048
     Dates: start: 20110930
  6. DILANTIN [Concomitant]
     Indication: CONVULSION
     Dosage: DAILY DOSE: 300MG
  7. ALDOMET [Concomitant]
     Indication: HYPERTENSION
     Route: 048
  8. PRENATAL VITS [Concomitant]
     Indication: PREGNANCY
     Route: 048
     Dates: start: 20110930
  9. DILANTIN [Concomitant]
     Dosage: DAILY DOSE: 200 MG/DAY

REACTIONS (7)
  - RENAL PAIN [None]
  - GESTATIONAL DIABETES [None]
  - HYPERTENSION [None]
  - CAESAREAN SECTION [None]
  - GRAND MAL CONVULSION [None]
  - HAEMATURIA [None]
  - MATERNAL EXPOSURE DURING PREGNANCY [None]
